FAERS Safety Report 4716449-3 (Version None)
Quarter: 2005Q3

REPORT INFORMATION
  Report Type: 
  Country: None (occurrence: None)
  Receive Date: 20050714
  Receipt Date: 20050627
  Transmission Date: 20060218
  Serious: Yes (Other)
  Sender: FDA-Public Use
  Company Number: MAG-2005-0000365

PATIENT
  Age: 69 Year
  Sex: Female

DRUGS (13)
  1. THEOPHYLLINE [Suspect]
     Indication: ASTHMA
     Dosage: 200 MG, DAILY, ORAL
     Route: 048
  2. WARFARIN SODIUM [Suspect]
     Indication: ATRIAL FIBRILLATION
     Dosage: 3.5 MG, DAILY, ORAL
     Route: 048
     Dates: end: 20050506
  3. QUETIAPINE FUMARATE [Suspect]
     Indication: SCHIZOPHRENIA
     Dosage: SEE IMAGE
     Route: 048
     Dates: start: 20050404, end: 20050420
  4. QUETIAPINE FUMARATE [Suspect]
     Indication: SCHIZOPHRENIA
     Dosage: SEE IMAGE
     Route: 048
     Dates: start: 20050421, end: 20050501
  5. QUETIAPINE FUMARATE [Suspect]
     Indication: SCHIZOPHRENIA
     Dosage: SEE IMAGE
     Route: 048
     Dates: start: 20050502
  6. ZOPICLONE (ZOPICLONE) [Concomitant]
  7. FUROSEMIDE (FUROSEMIDE) [Concomitant]
  8. METILDIGOXIN (METILDIGOXIN) [Concomitant]
  9. MAGNESIUM OXIDE (MAGNESIUM OXIDE) [Concomitant]
  10. PIMOBENDAN (PIMOBENDAN) [Concomitant]
  11. AMBROXOL HYDROCHLORIDE (AMBROXOL HYDROCHLORIDE) [Concomitant]
  12. L-ASPARTATE POTASSIUM [Concomitant]
  13. SPIRONOLACTONE [Concomitant]

REACTIONS (1)
  - INTERNATIONAL NORMALISED RATIO INCREASED [None]
